FAERS Safety Report 17206274 (Version 2)
Quarter: 2020Q1

REPORT INFORMATION
  Report Type: Report from Study
  Country: DE (occurrence: DE)
  Receive Date: 20191227
  Receipt Date: 20200117
  Transmission Date: 20200409
  Serious: Yes (Life-Threatening, Other)
  Sender: FDA-Public Use
  Company Number: DE-BRISTOL-MYERS SQUIBB COMPANY-BMS-2019-123595

PATIENT
  Age: 70 Year
  Sex: Male
  Weight: 76.8 kg

DRUGS (11)
  1. TRASTUZUMAB. [Suspect]
     Active Substance: TRASTUZUMAB
     Indication: OESOPHAGEAL ADENOCARCINOMA
     Dosage: 480 MILLIGRAM
     Route: 065
     Dates: start: 20191023, end: 20191204
  2. NIVOLUMAB [Suspect]
     Active Substance: NIVOLUMAB
     Indication: OESOPHAGEAL ADENOCARCINOMA
     Dosage: 80 MILLIGRAM
     Route: 065
     Dates: start: 20191023, end: 20191204
  3. PANTOPRAZOLE [Concomitant]
     Active Substance: PANTOPRAZOLE
     Indication: PRODUCT USED FOR UNKNOWN INDICATION
     Dosage: 40 MILLIGRAM, BID AS PROTON PUMP INHIBITOR (PPI)
     Route: 065
     Dates: start: 201909
  4. VALIUM [Concomitant]
     Active Substance: DIAZEPAM
     Indication: ELECTROLYTE SUBSTITUTION THERAPY
     Dosage: VALIUM RED VAPSELN, 2TIMES IN THE MRONING AND AFTERNOON
     Route: 065
     Dates: start: 201909
  5. METAMIZOL [Concomitant]
     Active Substance: METAMIZOLE SODIUM
     Indication: PAIN
     Dosage: 500 MILLIGRAM, QID
     Route: 065
     Dates: start: 201909
  6. NIVOLUMAB [Suspect]
     Active Substance: NIVOLUMAB
     Indication: PRODUCT USED FOR UNKNOWN INDICATION
     Dosage: 240 MILLIGRAM
     Route: 065
     Dates: start: 20200113
  7. TRASTUZUMAB. [Suspect]
     Active Substance: TRASTUZUMAB
     Indication: PRODUCT USED FOR UNKNOWN INDICATION
     Dosage: 310 MILLIGRAM
     Route: 065
     Dates: start: 20200113
  8. MCP [Concomitant]
     Active Substance: METOCLOPRAMIDE HYDROCHLORIDE
     Indication: PROPHYLAXIS OF NAUSEA AND VOMITING
     Dosage: 10 MILLIGRAM, TID
     Route: 065
     Dates: start: 201909
  9. TILIDIN [Concomitant]
     Active Substance: NALOXONE HYDROCHLORIDE\TILIDINE HYDROCHLORIDE
     Indication: PAIN
     Dosage: 5.14 MILLIGRAM, BID
     Route: 065
     Dates: start: 201909
  10. IPILIMUMAB [Suspect]
     Active Substance: IPILIMUMAB
     Indication: OESOPHAGEAL ADENOCARCINOMA
     Dosage: 240 MILLIGRAM
     Route: 065
     Dates: start: 20191023, end: 20191204
  11. AMLODIPINE [Concomitant]
     Active Substance: AMLODIPINE BESYLATE
     Indication: HYPERTENSION
     Dosage: 5 MILLIGRAM, BID
     Route: 065
     Dates: start: 201909

REACTIONS (1)
  - Acute kidney injury [Recovered/Resolved]

NARRATIVE: CASE EVENT DATE: 20191223
